FAERS Safety Report 8483211-8 (Version None)
Quarter: 2012Q3

REPORT INFORMATION
  Report Type: 
  Country: None (occurrence: None)
  Receive Date: 20120702
  Receipt Date: 20120621
  Transmission Date: 20120928
  Serious: Yes (Death, Other)
  Sender: FDA-Public Use
  Company Number: GR-TEVA-345854ISR

PATIENT
  Age: 19 Year
  Sex: Female

DRUGS (2)
  1. SUNITINIB MALATE [Suspect]
     Indication: METASTATIC RENAL CELL CARCINOMA
     Dosage: 50 MILLIGRAM; 4 WEEKS ON AND 2 WEEKS OFF
  2. CISPLATIN [Suspect]
     Indication: METASTATIC RENAL CELL CARCINOMA

REACTIONS (4)
  - GINGIVITIS ULCERATIVE [None]
  - DEATH [None]
  - GINGIVAL BLEEDING [None]
  - INFECTION [None]
